FAERS Safety Report 6972297-5 (Version None)
Quarter: 2010Q3

REPORT INFORMATION
  Report Type: 
  Country: None (occurrence: None)
  Receive Date: 20100909
  Receipt Date: 20100826
  Transmission Date: 20110219
  Serious: Yes (Other)
  Sender: FDA-Public Use
  Company Number: PHHY2010US54726

PATIENT
  Sex: Female
  Weight: 63.5 kg

DRUGS (1)
  1. EXJADE [Suspect]
     Indication: MYELODYSPLASTIC SYNDROME
     Dosage: 625 MG, QD
     Route: 048
     Dates: start: 20100806

REACTIONS (4)
  - ARTERIAL GRAFT [None]
  - CAROTID ARTERY DISEASE [None]
  - DYSPNOEA [None]
  - FATIGUE [None]
